FAERS Safety Report 20874957 (Version 1)
Quarter: 2022Q2

REPORT INFORMATION
  Report Type: Spontaneous
  Country: US (occurrence: US)
  Receive Date: 20220526
  Receipt Date: 20220526
  Transmission Date: 20220721
  Serious: No
  Sender: FDA-Public Use
  Company Number: US-BANNER LIFE SCIENCES, LLC-2022BAN000048

PATIENT

DRUGS (1)
  1. BAFIERTAM [Suspect]
     Active Substance: MONOMETHYL FUMARATE
     Indication: Multiple sclerosis
     Dosage: 95 MG TWICE DAILY FOR A WEEK AND 190 MG, BID
     Dates: start: 20210929

REACTIONS (2)
  - Skin burning sensation [Recovered/Resolved]
  - Eye irritation [Recovered/Resolved]
